FAERS Safety Report 19168991 (Version 3)
Quarter: 2021Q2

REPORT INFORMATION
  Report Type: Spontaneous
  Country: CA (occurrence: CA)
  Receive Date: 20210422
  Receipt Date: 20210626
  Transmission Date: 20210717
  Serious: Yes (Hospitalization, Other)
  Sender: FDA-Public Use
  Company Number: CA-TEVA-2021-CA-1901879

PATIENT
  Age: 22 Year
  Sex: Female

DRUGS (66)
  1. QUETIAPINE FUMARATE. [Suspect]
     Active Substance: QUETIAPINE FUMARATE
     Indication: SCHIZOAFFECTIVE DISORDER
     Dosage: 5 MILLIGRAM DAILY;
     Route: 048
  2. RISPERIDONE. [Suspect]
     Active Substance: RISPERIDONE
     Route: 065
  3. APO?OLANZAPINE [Suspect]
     Active Substance: OLANZAPINE
     Indication: PRODUCT USED FOR UNKNOWN INDICATION
     Route: 065
  4. RISPERDAL CONSTA [Suspect]
     Active Substance: RISPERIDONE
     Route: 065
  5. SODIUM VALPROATE [Concomitant]
     Active Substance: VALPROATE SODIUM
     Indication: SCHIZOPHRENIA
  6. LAMOTRIGINE. [Suspect]
     Active Substance: LAMOTRIGINE
     Indication: SCHIZOPHRENIA
     Route: 065
  7. OLANZAPINE. [Suspect]
     Active Substance: OLANZAPINE
     Route: 065
  8. QUETIAPINE FUMARATE. [Suspect]
     Active Substance: QUETIAPINE FUMARATE
     Route: 048
  9. LOXAPINE. [Suspect]
     Active Substance: LOXAPINE
     Route: 065
  10. OLANZAPINE. [Suspect]
     Active Substance: OLANZAPINE
     Dosage: 1 DOSAGE FORMS DAILY;
     Route: 065
  11. RISPERIDONE. [Suspect]
     Active Substance: RISPERIDONE
     Route: 065
  12. ABILIFY [Suspect]
     Active Substance: ARIPIPRAZOLE
     Indication: SCHIZOAFFECTIVE DISORDER
     Route: 065
  13. LITHIUM. [Suspect]
     Active Substance: LITHIUM
     Route: 065
  14. RISPERDAL CONSTA [Suspect]
     Active Substance: RISPERIDONE
     Indication: SCHIZOPHRENIA
     Route: 065
  15. QUETIAPINE. [Suspect]
     Active Substance: QUETIAPINE
     Route: 030
  16. OLANZAPINE. [Suspect]
     Active Substance: OLANZAPINE
     Route: 065
  17. OLANZAPINE. [Suspect]
     Active Substance: OLANZAPINE
     Route: 065
  18. QUETIAPINE FUMARATE. [Suspect]
     Active Substance: QUETIAPINE FUMARATE
     Route: 065
  19. QUETIAPINE FUMARATE. [Suspect]
     Active Substance: QUETIAPINE FUMARATE
     Route: 065
  20. RISPERIDONE. [Suspect]
     Active Substance: RISPERIDONE
     Route: 065
  21. BENZTROPINE. [Suspect]
     Active Substance: BENZTROPINE
     Route: 065
  22. LITHIUM. [Suspect]
     Active Substance: LITHIUM
     Indication: AFFECTIVE DISORDER
     Route: 065
  23. LOXAPINE. [Suspect]
     Active Substance: LOXAPINE
     Dosage: 50 MILLIGRAM DAILY;
     Route: 065
  24. RISPERDAL CONSTA [Suspect]
     Active Substance: RISPERIDONE
     Route: 030
  25. VALPROIC ACID. [Suspect]
     Active Substance: VALPROIC ACID
     Indication: SCHIZOAFFECTIVE DISORDER
     Route: 065
  26. ZYPREXA ZYDIS [Suspect]
     Active Substance: OLANZAPINE
     Indication: PRODUCT USED FOR UNKNOWN INDICATION
     Route: 048
  27. LAMOTRIGINE. [Suspect]
     Active Substance: LAMOTRIGINE
     Route: 065
  28. OLANZAPINE. [Suspect]
     Active Substance: OLANZAPINE
     Dosage: 5 MILLIGRAM DAILY;
     Route: 065
  29. OLANZAPINE. [Suspect]
     Active Substance: OLANZAPINE
     Route: 065
  30. QUETIAPINE FUMARATE. [Suspect]
     Active Substance: QUETIAPINE FUMARATE
     Route: 065
  31. QUETIAPINE FUMARATE. [Suspect]
     Active Substance: QUETIAPINE FUMARATE
     Dosage: 5 MILLIGRAM DAILY;
     Route: 048
  32. ABILIFY [Suspect]
     Active Substance: ARIPIPRAZOLE
     Indication: SCHIZOPHRENIA
     Route: 065
  33. ABILIFY [Suspect]
     Active Substance: ARIPIPRAZOLE
     Route: 065
  34. ABILIFY [Suspect]
     Active Substance: ARIPIPRAZOLE
     Route: 065
  35. LITHIUM. [Suspect]
     Active Substance: LITHIUM
     Indication: SCHIZOPHRENIA
     Route: 065
  36. LITHIUM. [Suspect]
     Active Substance: LITHIUM
     Route: 065
  37. LOXAPINE. [Suspect]
     Active Substance: LOXAPINE
     Route: 065
  38. RISPERDAL CONSTA [Suspect]
     Active Substance: RISPERIDONE
     Route: 065
  39. RISPERDAL CONSTA [Suspect]
     Active Substance: RISPERIDONE
     Route: 065
  40. ZIPRASIDONE HYDROCHLORIDE. [Suspect]
     Active Substance: ZIPRASIDONE HYDROCHLORIDE
     Indication: PRODUCT USED FOR UNKNOWN INDICATION
     Route: 065
  41. OLANZAPINE. [Suspect]
     Active Substance: OLANZAPINE
     Route: 065
  42. RISPERIDONE. [Suspect]
     Active Substance: RISPERIDONE
     Indication: SCHIZOAFFECTIVE DISORDER
     Route: 065
  43. RISPERIDONE. [Suspect]
     Active Substance: RISPERIDONE
     Route: 065
  44. BENZTROPINE. [Suspect]
     Active Substance: BENZTROPINE
     Indication: SCHIZOPHRENIA
     Route: 065
  45. LOXAPINE. [Suspect]
     Active Substance: LOXAPINE
     Dosage: 50 MILLIGRAM DAILY;
     Route: 065
  46. RISPERDAL CONSTA [Suspect]
     Active Substance: RISPERIDONE
     Route: 065
  47. LAMOTRIGINE. [Suspect]
     Active Substance: LAMOTRIGINE
     Route: 065
  48. OLANZAPINE. [Suspect]
     Active Substance: OLANZAPINE
     Indication: SCHIZOAFFECTIVE DISORDER
     Dosage: 5 MILLIGRAM DAILY;
     Route: 065
  49. QUETIAPINE FUMARATE. [Suspect]
     Active Substance: QUETIAPINE FUMARATE
     Indication: SCHIZOPHRENIA
     Route: 065
  50. QUETIAPINE FUMARATE. [Suspect]
     Active Substance: QUETIAPINE FUMARATE
     Route: 048
  51. RISPERIDONE. [Suspect]
     Active Substance: RISPERIDONE
     Indication: SCHIZOPHRENIA
     Route: 030
  52. ARIPIPRAZOLE. [Suspect]
     Active Substance: ARIPIPRAZOLE
     Indication: SCHIZOAFFECTIVE DISORDER
     Route: 030
  53. LOXAPINE. [Suspect]
     Active Substance: LOXAPINE
     Route: 065
  54. RISPERDAL CONSTA [Suspect]
     Active Substance: RISPERIDONE
     Indication: SCHIZOAFFECTIVE DISORDER
     Route: 030
  55. RISPERDAL CONSTA [Suspect]
     Active Substance: RISPERIDONE
     Route: 065
  56. LAMOTRIGINE. [Suspect]
     Active Substance: LAMOTRIGINE
     Indication: AFFECTIVE DISORDER
     Route: 065
  57. OLANZAPINE. [Suspect]
     Active Substance: OLANZAPINE
     Indication: SCHIZOPHRENIA
     Dosage: 1 DOSAGE FORMS DAILY;
     Route: 065
  58. OLANZAPINE. [Suspect]
     Active Substance: OLANZAPINE
     Route: 065
  59. RISPERIDONE. [Suspect]
     Active Substance: RISPERIDONE
     Route: 030
  60. RISPERIDONE. [Suspect]
     Active Substance: RISPERIDONE
     Route: 065
  61. APO?OLANZAPINE [Suspect]
     Active Substance: OLANZAPINE
     Route: 065
  62. BENZTROPINE. [Suspect]
     Active Substance: BENZTROPINE
     Indication: SCHIZOAFFECTIVE DISORDER
     Route: 065
  63. BENZTROPINE. [Suspect]
     Active Substance: BENZTROPINE
     Route: 065
  64. LOXAPINE. [Suspect]
     Active Substance: LOXAPINE
     Indication: SCHIZOPHRENIA
     Route: 065
  65. LOXAPINE. [Suspect]
     Active Substance: LOXAPINE
     Indication: SCHIZOAFFECTIVE DISORDER
     Route: 065
  66. LOXAPINE. [Suspect]
     Active Substance: LOXAPINE
     Route: 065

REACTIONS (1)
  - Oculogyric crisis [Recovered/Resolved]
